FAERS Safety Report 6368841-1 (Version None)
Quarter: 2009Q3

REPORT INFORMATION
  Report Type: 
  Country: None (occurrence: None)
  Receive Date: 20090918
  Receipt Date: 20090918
  Transmission Date: 20100115
  Serious: No
  Sender: FDA-Public Use
  Company Number: None

PATIENT
  Age: 42 Year
  Sex: Male
  Weight: 63.5036 kg

DRUGS (1)
  1. ZICAM HOMEOPATHIC MATRIXX INITIATIVES, INC. [Suspect]
     Indication: NASAL CONGESTION
     Dosage: SWAB 2 DAILY NASAL
     Route: 045
     Dates: start: 20090601, end: 20090731

REACTIONS (2)
  - AGEUSIA [None]
  - ANOSMIA [None]
